FAERS Safety Report 7472861-3 (Version None)
Quarter: 2011Q2

REPORT INFORMATION
  Report Type: 
  Country: None (occurrence: None)
  Receive Date: 20110503
  Receipt Date: 20110420
  Transmission Date: 20111010
  Serious: Yes (Hospitalization)
  Sender: FDA-Public Use
  Company Number: 2011SP000360

PATIENT
  Age: 33 Year
  Sex: Female
  Weight: 103.4201 kg

DRUGS (2)
  1. NUVARING [Suspect]
     Indication: CONTRACEPTION
     Dates: start: 20091101, end: 20100120
  2. CLARITIN [Concomitant]

REACTIONS (5)
  - HEADACHE [None]
  - PULMONARY EMBOLISM [None]
  - HYPERCOAGULATION [None]
  - DIZZINESS [None]
  - PAIN [None]
